FAERS Safety Report 25728131 (Version 1)
Quarter: 2025Q3

REPORT INFORMATION
  Report Type: Spontaneous
  Country: AR (occurrence: AR)
  Receive Date: 20250826
  Receipt Date: 20250826
  Transmission Date: 20251020
  Serious: No
  Sender: PFIZER
  Company Number: AR-PFIZER INC-202500167733

PATIENT
  Age: 25 Year
  Sex: Female

DRUGS (4)
  1. GENOTROPIN [Suspect]
     Active Substance: SOMATROPIN
     Indication: Prader-Willi syndrome
     Dates: start: 20070605, end: 20250818
  2. SERTRALINE [Concomitant]
     Active Substance: SERTRALINE HYDROCHLORIDE
  3. LORAZEPAM [Concomitant]
     Active Substance: LORAZEPAM
  4. RISPERIDONE [Concomitant]
     Active Substance: RISPERIDONE

REACTIONS (6)
  - Drug dose omission by device [Unknown]
  - Device mechanical issue [Unknown]
  - Wrong technique in device usage process [Unknown]
  - Product preparation issue [Unknown]
  - Device issue [Unknown]
  - Device information output issue [Unknown]

NARRATIVE: CASE EVENT DATE: 20250818
